FAERS Safety Report 16834764 (Version 1)
Quarter: 2019Q3

REPORT INFORMATION
  Report Type: Spontaneous
  Country: US (occurrence: US)
  Receive Date: 20190920
  Receipt Date: 20190920
  Transmission Date: 20191005
  Serious: Yes (Other)
  Sender: FDA-Public Use
  Company Number: US-ASTRAZENECA-2019SF33945

PATIENT
  Sex: Female

DRUGS (3)
  1. IBRANCE [Suspect]
     Active Substance: PALBOCICLIB
     Route: 048
  2. ANASTRAZOLE [Suspect]
     Active Substance: ANASTROZOLE
     Route: 048
  3. FASLODEX [Suspect]
     Active Substance: FULVESTRANT
     Route: 030
     Dates: start: 2016

REACTIONS (9)
  - Neoplasm malignant [Unknown]
  - Adenocarcinoma [Unknown]
  - Injection site swelling [Unknown]
  - Product storage error [Unknown]
  - Gait inability [Unknown]
  - Injection site pain [Unknown]
  - Pleural effusion [Recovered/Resolved]
  - Product administration error [Unknown]
  - Wrong technique in product usage process [Unknown]
